FAERS Safety Report 14993936 (Version 1)
Quarter: 2018Q2

REPORT INFORMATION
  Report Type: Report from Study
  Country: AU (occurrence: AU)
  Receive Date: 20180611
  Receipt Date: 20180611
  Transmission Date: 20180711
  Serious: Yes (Death, Other)
  Sender: FDA-Public Use
  Company Number: AU-B.I. PHARMACEUTICALS,INC./RIDGEFIELD-2018-BI-030176

PATIENT

DRUGS (2)
  1. PRAXBIND [Suspect]
     Active Substance: IDARUCIZUMAB
     Dosage: SECOND DOSE ADMINISTERED 2 DAYS LATER. DESPITE EVENTUAL NORMALIZATION OF COAGULATION PARAMETERS
     Route: 065
  2. PRAXBIND [Suspect]
     Active Substance: IDARUCIZUMAB
     Indication: PROCOAGULANT THERAPY
     Dosage: FIRST DOSE ADMINISTERED IMMEDIATELY PRIOR TO URGENT PERICARDIOCENTESIS FOR PERICARDIAL EFFUSION
     Route: 065

REACTIONS (1)
  - Cardiogenic shock [Fatal]
